FAERS Safety Report 11525760 (Version 1)
Quarter: 2015Q3

REPORT INFORMATION
  Report Type: Spontaneous
  Country: IT (occurrence: IT)
  Receive Date: 20150918
  Receipt Date: 20150918
  Transmission Date: 20151125
  Serious: Yes (Other)
  Sender: FDA-Public Use
  Company Number: IT-BAXALTA-2015BLT001748

PATIENT
  Sex: Male

DRUGS (1)
  1. ADVATE [Suspect]
     Active Substance: ANTIHEMOPHILIC FACTOR, HUMAN RECOMBINANT
     Indication: FACTOR VIII DEFICIENCY
     Dosage: 18000 U, UNK
     Route: 065
     Dates: start: 20111002

REACTIONS (3)
  - Muscle haemorrhage [Recovered/Resolved]
  - Compartment syndrome [Recovered/Resolved]
  - Factor VIII inhibition [Recovered/Resolved]
